FAERS Safety Report 9895554 (Version 1)
Quarter: 2014Q1

REPORT INFORMATION
  Report Type: Spontaneous
  Country: US (occurrence: US)
  Receive Date: 20140213
  Receipt Date: 20140213
  Transmission Date: 20141002
  Serious: No
  Sender: FDA-Public Use
  Company Number: US-BRISTOL-MYERS SQUIBB COMPANY-17290727

PATIENT
  Age: 44 Year
  Sex: Female
  Weight: 90.7 kg

DRUGS (1)
  1. ORENCIA [Suspect]
     Indication: RHEUMATOID ARTHRITIS
     Route: 058
     Dates: start: 1998

REACTIONS (2)
  - Headache [Not Recovered/Not Resolved]
  - Influenza like illness [Recovered/Resolved]
